FAERS Safety Report 8045392-X (Version None)
Quarter: 2012Q1

REPORT INFORMATION
  Report Type: 
  Country: None (occurrence: None)
  Receive Date: 20120111
  Receipt Date: 20120111
  Transmission Date: 20120608
  Serious: Yes (Death)
  Sender: FDA-Public Use
  Company Number: None

PATIENT
  Sex: Male
  Weight: 49.1 kg

DRUGS (1)
  1. METFORMIN HCL [Suspect]
     Indication: TYPE 2 DIABETES MELLITUS
     Dosage: 1000MG TWICE DAILY ORAL
     Route: 048
     Dates: start: 20060801

REACTIONS (8)
  - RENAL FAILURE [None]
  - HYPOVOLAEMIA [None]
  - DIARRHOEA [None]
  - HYPOGLYCAEMIA [None]
  - TACHYPNOEA [None]
  - LACTIC ACIDOSIS [None]
  - MALAISE [None]
  - ASTHENIA [None]
